FAERS Safety Report 16905657 (Version 1)
Quarter: 2019Q4

REPORT INFORMATION
  Report Type: Spontaneous
  Country: HU (occurrence: HU)
  Receive Date: 20191010
  Receipt Date: 20191010
  Transmission Date: 20200122
  Serious: Yes (Death)
  Sender: FDA-Public Use
  Company Number: HU-ELI_LILLY_AND_COMPANY-HU201910003132

PATIENT
  Age: 83 Year
  Sex: Female

DRUGS (1)
  1. FORSTEO 250UG/ML [Suspect]
     Active Substance: TERIPARATIDE
     Indication: SPINAL COMPRESSION FRACTURE
     Dosage: UNK UNK, UNKNOWN
     Route: 065
     Dates: start: 201904

REACTIONS (3)
  - Death [Fatal]
  - Off label use [Unknown]
  - Multimorbidity [Unknown]
